FAERS Safety Report 11861472 (Version 2)
Quarter: 2015Q4

REPORT INFORMATION
  Report Type: Report from Study
  Country: AM (occurrence: AM)
  Receive Date: 20151222
  Receipt Date: 20151230
  Transmission Date: 20160305
  Serious: Yes (Death, Hospitalization)
  Sender: FDA-Public Use
  Company Number: AM-JNJFOC-20151212561

PATIENT
  Age: 52 Year
  Sex: Male
  Weight: 60 kg

DRUGS (15)
  1. BEDAQUILINE [Suspect]
     Active Substance: BEDAQUILINE
     Indication: TUBERCULOSIS
     Dosage: 200 UNIT
     Route: 048
     Dates: start: 20150918, end: 20151105
  2. EUPHYLLINUM [Concomitant]
     Indication: CHRONIC OBSTRUCTIVE PULMONARY DISEASE
     Dosage: 2.4 %
     Route: 042
     Dates: start: 20151026
  3. IZODINIT [Concomitant]
     Indication: ANGINA PECTORIS
     Route: 048
     Dates: start: 20151029, end: 20151102
  4. LINEZOLID. [Suspect]
     Active Substance: LINEZOLID
     Indication: PRODUCT USED FOR UNKNOWN INDICATION
     Dosage: 600 UNITS
     Route: 048
     Dates: start: 20150619
  5. LINEZOLID. [Suspect]
     Active Substance: LINEZOLID
     Indication: PRODUCT USED FOR UNKNOWN INDICATION
     Dosage: 600 UNITS
     Route: 048
     Dates: end: 20151105
  6. IMIPENEM [Suspect]
     Active Substance: IMIPENEM
     Indication: PRODUCT USED FOR UNKNOWN INDICATION
     Route: 042
     Dates: end: 20151105
  7. CYCLOSPORIN [Suspect]
     Active Substance: CYCLOSPORINE
     Indication: PRODUCT USED FOR UNKNOWN INDICATION
     Dosage: 750 UNITS
     Route: 048
     Dates: start: 20150619
  8. CYCLOSPORIN [Suspect]
     Active Substance: CYCLOSPORINE
     Indication: PRODUCT USED FOR UNKNOWN INDICATION
     Route: 048
     Dates: end: 20151105
  9. ATENOLOL. [Concomitant]
     Active Substance: ATENOLOL
     Indication: HYPERTENSION
     Route: 048
     Dates: start: 20151029, end: 20151102
  10. BEDAQUILINE [Suspect]
     Active Substance: BEDAQUILINE
     Indication: TUBERCULOSIS
     Dosage: 200 UNIT
     Route: 048
     Dates: start: 20150619, end: 20150909
  11. CLOFAZIMINE [Suspect]
     Active Substance: CLOFAZIMINE
     Indication: PRODUCT USED FOR UNKNOWN INDICATION
     Dosage: 100 UNITS
     Route: 048
     Dates: start: 20151027, end: 20151105
  12. AMOXICILLIN W/CLAVULANIC ACID [Suspect]
     Active Substance: AMOXICILLIN\CLAVULANIC ACID
     Indication: PRODUCT USED FOR UNKNOWN INDICATION
     Dosage: 2000 UNITS
     Route: 048
     Dates: start: 20150619, end: 20151105
  13. CLOFAZIMINE [Suspect]
     Active Substance: CLOFAZIMINE
     Indication: PRODUCT USED FOR UNKNOWN INDICATION
     Dosage: 100 UNITS
     Route: 048
     Dates: start: 20150619, end: 20150909
  14. IMIPENEM [Suspect]
     Active Substance: IMIPENEM
     Indication: PRODUCT USED FOR UNKNOWN INDICATION
     Dosage: 2000 UNITS
     Route: 042
     Dates: start: 20150619
  15. OMEPRAZOLE. [Concomitant]
     Active Substance: OMEPRAZOLE
     Indication: ABDOMINAL PAIN UPPER
     Route: 048
     Dates: start: 20151026, end: 20151029

REACTIONS (2)
  - Cardiac failure [Fatal]
  - Respiratory failure [Not Recovered/Not Resolved]

NARRATIVE: CASE EVENT DATE: 20150830
